FAERS Safety Report 4592300-X (Version None)
Quarter: 2005Q1

REPORT INFORMATION
  Report Type: 
  Country: None (occurrence: None)
  Receive Date: 20050228
  Receipt Date: 20041124
  Transmission Date: 20050727
  Serious: Yes (Hospitalization)
  Sender: FDA-Public Use
  Company Number: US-BRISTOL-MYERS SQUIBB COMPANY-12775037

PATIENT
  Age: 28 Year
  Sex: Male
  Weight: 122 kg

DRUGS (4)
  1. ABILIFY [Suspect]
     Indication: SCHIZOAFFECTIVE DISORDER
     Route: 048
     Dates: start: 20041102
  2. CLOZAPINE [Concomitant]
  3. SEROQUEL [Concomitant]
  4. PAXIL [Concomitant]

REACTIONS (3)
  - CONVULSION [None]
  - FALL [None]
  - POLYTRAUMATISM [None]
